FAERS Safety Report 4928165-3 (Version None)
Quarter: 2006Q1

REPORT INFORMATION
  Report Type: 
  Country: None (occurrence: None)
  Receive Date: 20060223
  Receipt Date: 20060201
  Transmission Date: 20060701
  Serious: Yes (Death, Other)
  Sender: FDA-Public Use
  Company Number: HU200601002216

PATIENT
  Age: 28 Year
  Sex: Male

DRUGS (3)
  1. ZYPREXA [Suspect]
     Indication: SCHIZOPHRENIA
     Dosage: 10 MG, 2/D, INTRAMUSCULAR - SEE IMAGE
     Route: 030
     Dates: start: 20051227, end: 20051227
  2. ZYPREXA [Suspect]
     Indication: SCHIZOPHRENIA
     Dosage: 10 MG, 2/D, INTRAMUSCULAR - SEE IMAGE
     Route: 030
     Dates: start: 20051227
  3. RISPERDAL                        /SWE/(RISPERIDONE) [Concomitant]

REACTIONS (4)
  - AGITATION [None]
  - BLOOD CREATINE PHOSPHOKINASE INCREASED [None]
  - DELUSION [None]
  - PULMONARY EMBOLISM [None]
